FAERS Safety Report 6874530-7 (Version None)
Quarter: 2010Q2

REPORT INFORMATION
  Report Type: 
  Country: None (occurrence: None)
  Receive Date: 20100610
  Receipt Date: 20100329
  Transmission Date: 20101027
  Serious: No
  Sender: FDA-Public Use
  Company Number: 2010SP019018

PATIENT
  Age: 26 Year
  Sex: Female

DRUGS (4)
  1. SAPHRIS [Suspect]
     Indication: DRUG USE FOR UNKNOWN INDICATION
     Dosage: 5 MG;BID
  2. KLONOPIN [Concomitant]
  3. SEROQUEL [Concomitant]
  4. GEODON [Concomitant]

REACTIONS (2)
  - GLOSSODYNIA [None]
  - HYPOAESTHESIA ORAL [None]
